FAERS Safety Report 6338861-1 (Version None)
Quarter: 2009Q3

REPORT INFORMATION
  Report Type: 
  Country: None (occurrence: None)
  Receive Date: 20090903
  Receipt Date: 20090824
  Transmission Date: 20100115
  Serious: Yes (Life-Threatening, Hospitalization)
  Sender: FDA-Public Use
  Company Number: CZ-SP-2009-02489

PATIENT
  Age: 80 Year
  Sex: Male

DRUGS (3)
  1. IMMUCYST [Suspect]
     Indication: BLADDER CANCER RECURRENT
     Route: 043
     Dates: start: 20080521, end: 20080905
  2. IMMUCYST [Suspect]
     Route: 043
     Dates: start: 20080521, end: 20080905
  3. ZANOCIN [Concomitant]
     Route: 048

REACTIONS (6)
  - BLADDER CANCER RECURRENT [None]
  - BOVINE TUBERCULOSIS [None]
  - METASTASES TO BONE [None]
  - PYREXIA [None]
  - STRANGURY [None]
  - TREATMENT FAILURE [None]
